FAERS Safety Report 16907814 (Version 1)
Quarter: 2019Q4

REPORT INFORMATION
  Report Type: Spontaneous
  Country: US (occurrence: US)
  Receive Date: 20190820
  Receipt Date: 20190820
  Transmission Date: 20200122
  Serious: Yes (Hospitalization)
  Sender: FDA-Public Use
  Company Number: None

PATIENT
  Age: 73 Year
  Sex: Female
  Weight: 56.4 kg

DRUGS (2)
  1. MITOMYCIN C [Suspect]
     Active Substance: MITOMYCIN
     Dates: start: 20190325
  2. 5-FLUOROURACIL (5-FU) [Suspect]
     Active Substance: FLUOROURACIL
     Dates: start: 20190422

REACTIONS (1)
  - Large intestine infection [None]

NARRATIVE: CASE EVENT DATE: 20190503
